FAERS Safety Report 8766512 (Version 2)
Quarter: 2012Q4

REPORT INFORMATION
  Report Type: Report from Study
  Country: DE (occurrence: DE)
  Receive Date: 20120905
  Receipt Date: 20120920
  Transmission Date: 20130627
  Serious: Yes (Death, Hospitalization)
  Sender: FDA-Public Use
  Company Number: DE-ROCHE-1108597

PATIENT
  Age: 73 Year
  Sex: Female
  Weight: 74 kg

DRUGS (3)
  1. AVASTIN [Suspect]
     Indication: BREAST CANCER METASTATIC
     Route: 042
     Dates: start: 20120521, end: 20120723
  2. XELODA [Suspect]
     Indication: BREAST CANCER METASTATIC
     Route: 048
     Dates: start: 20120521, end: 20120707
  3. XELODA [Suspect]
     Route: 065
     Dates: start: 20120709, end: 20120805

REACTIONS (5)
  - Fall [Unknown]
  - Pulmonary embolism [Fatal]
  - Respiratory failure [Fatal]
  - Pneumonia aspiration [Not Recovered/Not Resolved]
  - Acute prerenal failure [Not Recovered/Not Resolved]
